FAERS Safety Report 7222888-1 (Version None)
Quarter: 2011Q1

REPORT INFORMATION
  Report Type: 
  Country: None (occurrence: None)
  Receive Date: 20110106
  Receipt Date: 20110106
  Transmission Date: 20110831
  Serious: Yes (Other)
  Sender: FDA-Public Use
  Company Number: None

PATIENT
  Sex: Female
  Weight: 56.6996 kg

DRUGS (2)
  1. ACTONEL [Suspect]
     Indication: PROPHYLAXIS
     Dosage: 1 PER MONTH 12X A YEAR
     Dates: start: 20100301, end: 20101001
  2. ACTONEL [Suspect]
     Indication: BONE DENSITY DECREASED
     Dosage: 1 PER MONTH 12X A YEAR
     Dates: start: 20100301, end: 20101001

REACTIONS (2)
  - MALAISE [None]
  - INFLUENZA [None]
